FAERS Safety Report 9474601 (Version 2)
Quarter: 2013Q4

REPORT INFORMATION
  Report Type: Spontaneous
  Country: GB (occurrence: GB)
  Receive Date: 20130823
  Receipt Date: 20131115
  Transmission Date: 20140711
  Serious: Yes (Life-Threatening)
  Sender: FDA-Public Use
  Company Number: GB-GLAXOSMITHKLINE-B0916644A

PATIENT
  Age: 31 Year
  Sex: Female

DRUGS (4)
  1. ZANTAC [Suspect]
     Indication: PROPHYLAXIS
     Route: 030
     Dates: start: 20130806
  2. VENTOLIN [Concomitant]
     Indication: ASTHMA
     Route: 055
  3. BECOTIDE [Concomitant]
     Indication: ASTHMA
     Route: 055
  4. SUMATRIPTAN [Concomitant]
     Indication: MIGRAINE
     Route: 048

REACTIONS (1)
  - Anaphylactic reaction [Recovered/Resolved]
